FAERS Safety Report 22193275 (Version 2)
Quarter: 2023Q2

REPORT INFORMATION
  Report Type: Report from Study
  Country: US (occurrence: US)
  Receive Date: 20230410
  Receipt Date: 20230504
  Transmission Date: 20230722
  Serious: No
  Sender: FDA-Public Use
  Company Number: US-ELI_LILLY_AND_COMPANY-US202304001860

PATIENT
  Sex: Female

DRUGS (1)
  1. VERZENIO [Suspect]
     Active Substance: ABEMACICLIB
     Indication: Back pain
     Dosage: 100 MG, BID
     Route: 048

REACTIONS (4)
  - Hypoaesthesia [Unknown]
  - Hot flush [Unknown]
  - Off label use [Unknown]
  - Diarrhoea [Unknown]
